FAERS Safety Report 5645193-3 (Version None)
Quarter: 2008Q1

REPORT INFORMATION
  Report Type: 
  Country: None (occurrence: None)
  Receive Date: 20080229
  Receipt Date: 20080220
  Transmission Date: 20080703
  Serious: Yes (Other)
  Sender: FDA-Public Use
  Company Number: US-ABBOTT-08P-163-0439146-00

PATIENT
  Sex: Male
  Weight: 82.628 kg

DRUGS (5)
  1. HUMIRA [Suspect]
     Indication: RHEUMATOID ARTHRITIS
     Route: 058
     Dates: start: 20060501, end: 20080129
  2. HUMIRA [Suspect]
     Route: 058
     Dates: start: 20080129
  3. METHOTREXATE [Concomitant]
     Indication: RHEUMATOID ARTHRITIS
     Route: 048
  4. FOLIC ACID [Concomitant]
     Indication: VITAMIN SUPPLEMENTATION
     Route: 048
  5. PROPACET 100 [Concomitant]
     Indication: PAIN
     Route: 048

REACTIONS (5)
  - ARTHRODESIS [None]
  - ARTHROPATHY [None]
  - C-REACTIVE PROTEIN INCREASED [None]
  - MOBILITY DECREASED [None]
  - PAIN [None]
